FAERS Safety Report 5631426-6 (Version None)
Quarter: 2008Q1

REPORT INFORMATION
  Report Type: 
  Country: None (occurrence: None)
  Receive Date: 20080214
  Receipt Date: 20080204
  Transmission Date: 20080703
  Serious: Yes (Death)
  Sender: FDA-Public Use
  Company Number: 2008-01167

PATIENT
  Age: 46 Year
  Sex: Male

DRUGS (7)
  1. IBUPROFEN TABLETS [Suspect]
  2. OXYCODONE HCL AND ACETAMINOPHEN [Suspect]
  3. BUPROPION HYDROCHLORIDE [Suspect]
  4. SERTRALINE HYDROCHLORIDE [Suspect]
  5. ANTIHISTAMINE [Suspect]
  6. DECONGESTANT [Suspect]
  7. DIPHENHYDRAMINE HCL [Suspect]

REACTIONS (1)
  - DEATH [None]
